FAERS Safety Report 23216259 (Version 1)
Quarter: 2023Q4

REPORT INFORMATION
  Report Type: Spontaneous
  Country: US (occurrence: US)
  Receive Date: 20231122
  Receipt Date: 20231122
  Transmission Date: 20240109
  Serious: No
  Sender: FDA-Public Use
  Company Number: US-AUROBINDO-AUR-APL-2023-061400

PATIENT
  Age: 45 Year
  Sex: Female
  Weight: 75 kg

DRUGS (3)
  1. LOSARTAN POTASSIUM AND HYDROCHLOROTHIAZIDE [Suspect]
     Active Substance: HYDROCHLOROTHIAZIDE\LOSARTAN POTASSIUM
     Indication: Hypertension
     Dosage: UNK UNK, DAILY (ONCE A DAY AND THE MEDICATION IS GOOD FOR 24 HOURS)
     Route: 065
     Dates: start: 20230916
  2. LOSARTAN POTASSIUM AND HYDROCHLOROTHIAZIDE [Suspect]
     Active Substance: HYDROCHLOROTHIAZIDE\LOSARTAN POTASSIUM
     Dosage: UNK UNK, DAILY (ONCE A DAY AND THE MEDICATION IS GOOD FOR 24 HOURS)
     Route: 065
     Dates: start: 20230917
  3. LOSARTAN POTASSIUM AND HYDROCHLOROTHIAZIDE [Suspect]
     Active Substance: HYDROCHLOROTHIAZIDE\LOSARTAN POTASSIUM
     Dosage: UNK UNK, DAILY (ONCE A DAY AND THE MEDICATION IS GOOD FOR 24 HOURS)
     Route: 065
     Dates: start: 20230918

REACTIONS (8)
  - Erythema [Unknown]
  - Feeling abnormal [Unknown]
  - Fear of death [Unknown]
  - Headache [Unknown]
  - Nervousness [Unknown]
  - Tremor [Unknown]
  - Drug ineffective [Unknown]
  - Product quality issue [Unknown]

NARRATIVE: CASE EVENT DATE: 20230916
